FAERS Safety Report 17214080 (Version 5)
Quarter: 2020Q1

REPORT INFORMATION
  Report Type: Spontaneous
  Country: US (occurrence: US)
  Receive Date: 20191230
  Receipt Date: 20200214
  Transmission Date: 20200409
  Serious: No
  Sender: FDA-Public Use
  Company Number: US-PFIZER INC-2019556462

PATIENT
  Age: 74 Year
  Sex: Female
  Weight: 61.23 kg

DRUGS (5)
  1. LEVOTHYROXINE. [Concomitant]
     Active Substance: LEVOTHYROXINE
     Indication: HYPOTHYROIDISM
     Dosage: 150 MG, 1X/DAY
  2. CALCIUM [Concomitant]
     Active Substance: CALCIUM
     Dosage: UNK
  3. VIT D [Concomitant]
     Active Substance: VITAMIN D NOS
     Dosage: UNK
  4. PREMPRO [Suspect]
     Active Substance: ESTROGENS, CONJUGATED\MEDROXYPROGESTERONE ACETATE
     Indication: OSTEOPOROSIS
     Dosage: UNK , 1X/DAY( ESTROGENS CONJUGATED: 0.625MG/MEDROXYPROGESTERONE ACETATE:2.5MG)
     Route: 048
     Dates: start: 2012
  5. PROLIA [Suspect]
     Active Substance: DENOSUMAB
     Indication: OSTEOPOROSIS
     Dosage: UNK (INFUSION INJECTION TWICE A YEAR/EVERY 6 MONTHS)
     Dates: start: 2012

REACTIONS (1)
  - Fall [Unknown]
